FAERS Safety Report 7037019-0 (Version None)
Quarter: 2010Q4

REPORT INFORMATION
  Report Type: 
  Country: None (occurrence: None)
  Receive Date: 20101011
  Receipt Date: 20100927
  Transmission Date: 20110411
  Serious: Yes (Hospitalization)
  Sender: FDA-Public Use
  Company Number: US-ACTELION-A-NJ2010-39642

PATIENT
  Sex: Male

DRUGS (12)
  1. BOSENTAN TABLET UNKNOWN US MG [Suspect]
     Indication: PULMONARY ARTERIAL HYPERTENSION
     Dosage: UNK
     Route: 048
     Dates: start: 20100409, end: 20100831
  2. COUMADIN [Concomitant]
  3. SPIRIVA [Concomitant]
  4. VITAMIN E [Concomitant]
  5. MAGNESIUM [Concomitant]
  6. SERTRALINE [Concomitant]
  7. SPIRONOLACTONE [Concomitant]
  8. BRETHINE [Concomitant]
  9. ADVAIR DISKUS 100/50 [Concomitant]
  10. DIGOXIN [Concomitant]
  11. VASOTEC [Concomitant]
  12. FOLIC ACID [Concomitant]

REACTIONS (9)
  - ABDOMINAL PAIN [None]
  - ACUTE RESPIRATORY FAILURE [None]
  - ALANINE AMINOTRANSFERASE INCREASED [None]
  - ASPARTATE AMINOTRANSFERASE INCREASED [None]
  - BLOOD ALKALINE PHOSPHATASE INCREASED [None]
  - BLOOD BILIRUBIN INCREASED [None]
  - CHOLECYSTITIS ACUTE [None]
  - CHRONIC OBSTRUCTIVE PULMONARY DISEASE [None]
  - HEPATIC ENZYME INCREASED [None]
